FAERS Safety Report 21951125 (Version 1)
Quarter: 2023Q1

REPORT INFORMATION
  Report Type: Spontaneous
  Country: US (occurrence: US)
  Receive Date: 20230203
  Receipt Date: 20230203
  Transmission Date: 20230418
  Serious: Yes (Hospitalization)
  Sender: FDA-Public Use
  Company Number: US-MannKind Corporation-2023MK000010

PATIENT
  Sex: Male

DRUGS (2)
  1. AFREZZA [Suspect]
     Active Substance: INSULIN HUMAN
     Indication: Type 1 diabetes mellitus
     Dosage: USED AFREZZA A FEW TIMES VIA STARTER PACK
  2. AFREZZA [Suspect]
     Active Substance: INSULIN HUMAN
     Dosage: 8 UNITS BEFORE MEALS AND 4 UNITS FOR CORRECTION
     Dates: start: 202212

REACTIONS (1)
  - Intestinal obstruction [Recovered/Resolved]
